FAERS Safety Report 8887421 (Version 1)
Quarter: 2012Q4

REPORT INFORMATION
  Report Type: Spontaneous
  Country: US (occurrence: None)
  Receive Date: 20121101
  Receipt Date: 20121101
  Transmission Date: 20130627
  Serious: Yes (Hospitalization)
  Sender: FDA-Public Use
  Company Number: None

PATIENT
  Age: 91 Year
  Sex: Female
  Weight: 66.23 kg

DRUGS (10)
  1. PROPAFENONE [Suspect]
     Indication: AFIB
     Dosage: chronic
     Route: 048
  2. ASA [Concomitant]
  3. SYNTROID [Concomitant]
  4. LUTEIN [Concomitant]
  5. MOBIC [Concomitant]
  6. VIT [Concomitant]
  7. PRILOSEC [Concomitant]
  8. ZANTAC [Concomitant]
  9. MICARDIS [Concomitant]
  10. COUMADIN [Concomitant]

REACTIONS (3)
  - Fall [None]
  - Asthenia [None]
  - Inappropriate antidiuretic hormone secretion [None]
